FAERS Safety Report 6903997-0 (Version None)
Quarter: 2010Q3

REPORT INFORMATION
  Report Type: 
  Country: None (occurrence: None)
  Receive Date: 20100804
  Receipt Date: 20090226
  Transmission Date: 20110219
  Serious: No
  Sender: FDA-Public Use
  Company Number: US-PFIZER INC-2009158681

PATIENT
  Sex: Female

DRUGS (1)
  1. LYRICA [Suspect]
     Indication: FIBROMYALGIA
     Dosage: 75 MG, UNK

REACTIONS (4)
  - EUPHORIC MOOD [None]
  - EYE SWELLING [None]
  - SWELLING [None]
  - VISUAL IMPAIRMENT [None]
